FAERS Safety Report 11179430 (Version 3)
Quarter: 2015Q3

REPORT INFORMATION
  Report Type: Spontaneous
  Country: JP (occurrence: JP)
  Receive Date: 20150611
  Receipt Date: 20150819
  Transmission Date: 20151125
  Serious: Yes (Hospitalization, Disabling, Other)
  Sender: FDA-Public Use
  Company Number: PHJP2015JP009271

PATIENT
  Age: 84 Year
  Sex: Male

DRUGS (15)
  1. NEORAL [Suspect]
     Active Substance: CYCLOSPORINE
     Dosage: 50 MG, QD
     Route: 048
     Dates: start: 201311, end: 20150608
  2. BAYASPIRIN [Concomitant]
     Active Substance: ASPIRIN
     Indication: PRODUCT USED FOR UNKNOWN INDICATION
     Dosage: 100 MG, QD
     Route: 048
  3. MAINTATE [Concomitant]
     Active Substance: BISOPROLOL FUMARATE
     Indication: PRODUCT USED FOR UNKNOWN INDICATION
     Dosage: 0.625 MG, BID
     Route: 065
  4. NEORAL [Suspect]
     Active Substance: CYCLOSPORINE
     Dosage: 150 MG, QD
     Route: 048
     Dates: start: 201207, end: 201212
  5. DAITALIC [Concomitant]
     Active Substance: AZOSEMIDE
     Indication: PRODUCT USED FOR UNKNOWN INDICATION
     Dosage: 60 MG, QD
     Route: 048
  6. FEBURIC [Concomitant]
     Active Substance: FEBUXOSTAT
     Indication: PRODUCT USED FOR UNKNOWN INDICATION
     Dosage: 20 MG, QD
     Route: 048
  7. THYRADIN [Concomitant]
     Active Substance: LEVOTHYROXINE
     Indication: PRODUCT USED FOR UNKNOWN INDICATION
     Dosage: 25 UG, QD
     Route: 065
  8. SAMSCA [Concomitant]
     Active Substance: TOLVAPTAN
     Indication: PRODUCT USED FOR UNKNOWN INDICATION
     Dosage: 3.75 MG, BID
     Route: 048
     Dates: start: 20150508, end: 20150529
  9. NEORAL [Suspect]
     Active Substance: CYCLOSPORINE
     Indication: DERMATITIS ATOPIC
     Dosage: 100 MG, QD
     Route: 048
     Dates: start: 201206, end: 201207
  10. FLUITRAN [Concomitant]
     Active Substance: TRICHLORMETHIAZIDE
     Indication: PRODUCT USED FOR UNKNOWN INDICATION
     Dosage: 1 MG, QD
     Route: 048
  11. LOCHOL [Concomitant]
     Active Substance: FLUVASTATIN SODIUM
     Indication: PRODUCT USED FOR UNKNOWN INDICATION
     Dosage: 20 MG, QD
     Route: 048
  12. GASCON [Concomitant]
     Active Substance: DIMETHICONE
     Indication: PRODUCT USED FOR UNKNOWN INDICATION
     Dosage: 40 MG, TID
     Route: 048
  13. NEORAL [Suspect]
     Active Substance: CYCLOSPORINE
     Dosage: 100 MG, QD
     Route: 048
     Dates: start: 201212, end: 201310
  14. NEORAL [Suspect]
     Active Substance: CYCLOSPORINE
     Dosage: 75 MG, QD
     Route: 048
     Dates: start: 201310, end: 201311
  15. NEXIUM 1-2-3 [Concomitant]
     Active Substance: AMOXICILLIN\CLARITHROMYCIN\ESOMEPRAZOLE
     Indication: PRODUCT USED FOR UNKNOWN INDICATION
     Dosage: 20 MG, QD
     Route: 048

REACTIONS (16)
  - Aortic dissection [Unknown]
  - Fluid retention [Unknown]
  - Anaemia [Unknown]
  - Normochromic normocytic anaemia [Unknown]
  - Aplastic anaemia [Recovered/Resolved]
  - Sepsis [Unknown]
  - Pyrexia [Unknown]
  - Gastric cancer [Unknown]
  - Cardiac failure chronic [Unknown]
  - Renal impairment [Recovered/Resolved]
  - Aplasia pure red cell [Recovered/Resolved]
  - Haematochezia [Unknown]
  - Nephrogenic anaemia [Unknown]
  - Device related infection [Unknown]
  - Hypothyroidism [Unknown]
  - Gastrointestinal haemorrhage [Unknown]

NARRATIVE: CASE EVENT DATE: 201306
